FAERS Safety Report 4746084-2 (Version None)
Quarter: 2005Q3

REPORT INFORMATION
  Report Type: 
  Country: None (occurrence: None)
  Receive Date: 20050816
  Receipt Date: 20050803
  Transmission Date: 20060218
  Serious: Yes (Other)
  Sender: FDA-Public Use
  Company Number: 2005AP04402

PATIENT
  Age: 64 Year

DRUGS (1)
  1. MEROPENEM [Suspect]

REACTIONS (1)
  - HYPONATRAEMIA [None]
